FAERS Safety Report 7169584-7 (Version None)
Quarter: 2010Q4

REPORT INFORMATION
  Report Type: 
  Country: None (occurrence: None)
  Receive Date: 20101217
  Receipt Date: 20101203
  Transmission Date: 20110411
  Serious: Yes (Hospitalization, Other)
  Sender: FDA-Public Use
  Company Number: US-RANBAXY-2010RR-40362

PATIENT
  Sex: Female

DRUGS (4)
  1. CIPROFLOXACIN [Suspect]
     Indication: SINUSITIS
  2. LEVAQUIN [Suspect]
     Indication: SINUSITIS
     Dosage: UNK
     Route: 048
     Dates: start: 20080101
  3. LEVAQUIN [Suspect]
     Indication: BRONCHITIS
  4. LEVAQUIN [Suspect]
     Indication: URINARY TRACT INFECTION

REACTIONS (6)
  - BURSITIS [None]
  - DRUG INEFFECTIVE [None]
  - EPICONDYLITIS [None]
  - MENISCUS LESION [None]
  - ROTATOR CUFF SYNDROME [None]
  - TENDON RUPTURE [None]
